FAERS Safety Report 7983908-X (Version None)
Quarter: 2011Q4

REPORT INFORMATION
  Report Type: 
  Country: None (occurrence: None)
  Receive Date: 20111216
  Receipt Date: 20111212
  Transmission Date: 20120403
  Serious: No
  Sender: FDA-Public Use
  Company Number: US-BIOGENIDEC-2011BI047092

PATIENT
  Age: 65 Year
  Sex: Female

DRUGS (5)
  1. TIMOPTIC [Concomitant]
     Indication: GLAUCOMA
  2. TYSABRI [Suspect]
     Route: 042
     Dates: start: 20110101, end: 20110101
  3. TYSABRI [Suspect]
     Route: 042
     Dates: start: 20110101, end: 20111001
  4. TYSABRI [Suspect]
     Indication: MULTIPLE SCLEROSIS
     Route: 042
     Dates: start: 20090112
  5. TYSABRI [Suspect]
     Route: 042
     Dates: start: 20111001

REACTIONS (1)
  - GLAUCOMA [None]
